FAERS Safety Report 23998773 (Version 1)
Quarter: 2024Q2

REPORT INFORMATION
  Report Type: Spontaneous
  Country: IR (occurrence: IR)
  Receive Date: 20240621
  Receipt Date: 20240621
  Transmission Date: 20240715
  Serious: Yes (Hospitalization)
  Sender: FDA-Public Use
  Company Number: IR-MACLEODS PHARMA-MAC2024047748

PATIENT

DRUGS (3)
  1. ACYCLOVIR [Suspect]
     Active Substance: ACYCLOVIR
     Indication: Antiviral prophylaxis
     Dosage: DILUTING IN NORMAL SALINE 0.9%, 6:00 PM
     Route: 042
     Dates: start: 20240609, end: 20240609
  2. ACYCLOVIR [Suspect]
     Active Substance: ACYCLOVIR
     Dosage: DILUTING IN NORMAL SALINE 0.9%, 2:00 AM
     Route: 042
     Dates: start: 20240610, end: 20240610
  3. SODIUM CHLORIDE [Concomitant]
     Active Substance: SODIUM CHLORIDE
     Indication: Product used for unknown indication
     Dosage: 0.9 PERCENT
     Route: 042
     Dates: start: 20220610

REACTIONS (5)
  - Swelling [Recovered/Resolved]
  - Skin discolouration [Recovered/Resolved]
  - Administration site extravasation [Recovered/Resolved]
  - Tissue injury [Recovered/Resolved]
  - Catheter site induration [Recovered/Resolved]

NARRATIVE: CASE EVENT DATE: 20220610
